FAERS Safety Report 8007061-1 (Version None)
Quarter: 2011Q4

REPORT INFORMATION
  Report Type: 
  Country: None (occurrence: None)
  Receive Date: 20111227
  Receipt Date: 20111216
  Transmission Date: 20120403
  Serious: Yes (Hospitalization)
  Sender: FDA-Public Use
  Company Number: GB-JNJFOC-20111208340

PATIENT
  Age: 7 Year
  Sex: Male

DRUGS (1)
  1. MEBENDAZOLE [Suspect]
     Indication: ENTEROBIASIS
     Route: 048
     Dates: start: 20111212

REACTIONS (3)
  - PAIN [None]
  - ABDOMINAL PAIN [None]
  - DRUG INEFFECTIVE [None]
